FAERS Safety Report 14912122 (Version 5)
Quarter: 2019Q4

REPORT INFORMATION
  Report Type: Spontaneous
  Country: US (occurrence: US)
  Receive Date: 20180518
  Receipt Date: 20191112
  Transmission Date: 20200122
  Serious: No
  Sender: FDA-Public Use
  Company Number: US-PFIZER INC-2018203309

PATIENT
  Age: 70 Year
  Sex: Female

DRUGS (3)
  1. IBRANCE [Suspect]
     Active Substance: PALBOCICLIB
     Dosage: 125 MG, CYCLIC (21 DAY THEN 7 DAY OFF)
     Route: 048
     Dates: start: 20191028
  2. IBRANCE [Suspect]
     Active Substance: PALBOCICLIB
     Dosage: 125 MG, CYCLIC (21 DAY THEN 7 DAY OFF)
     Route: 048
     Dates: end: 20191021
  3. FASLODEX [Concomitant]
     Active Substance: FULVESTRANT
     Dosage: UNK

REACTIONS (5)
  - Dyspepsia [Unknown]
  - Hypoacusis [Unknown]
  - Dry mouth [Unknown]
  - Hot flush [Unknown]
  - Urinary tract infection [Unknown]
